FAERS Safety Report 4860430-0 (Version None)
Quarter: 2005Q4

REPORT INFORMATION
  Report Type: 
  Country: None (occurrence: None)
  Receive Date: 20051215
  Receipt Date: 20051208
  Transmission Date: 20060501
  Serious: Yes (Other)
  Sender: FDA-Public Use
  Company Number: 006211

PATIENT
  Age: 31 Year
  Sex: Female
  Weight: 83.9 kg

DRUGS (4)
  1. CLARAVIS [Suspect]
     Indication: ACNE CYSTIC
     Dosage: 1 CAPS., QD, ORAL
     Route: 048
     Dates: start: 20041027, end: 20050217
  2. ORAL CONTRACEPTIVE NOS (ORAL CONTRACEPTIVE NOS) [Concomitant]
  3. FLUOXETINE [Concomitant]
  4. METHYLPHENIDATE HCL [Concomitant]

REACTIONS (5)
  - CHEST PAIN [None]
  - DYSPNOEA [None]
  - HERPES ZOSTER [None]
  - PAINFUL RESPIRATION [None]
  - THYROID GLAND CANCER [None]
